FAERS Safety Report 8863881 (Version 1)
Quarter: 2012Q4

REPORT INFORMATION
  Report Type: 
  Country: US (occurrence: US)
  Receive Date: 20121024
  Receipt Date: 20121024
  Transmission Date: 20130627
  Serious: No
  Sender: FDA-Public Use
  Company Number: US-AMGEN-USASP2011064408

PATIENT
  Age: 67 Year
  Sex: Female
  Weight: 46.71 kg

DRUGS (11)
  1. ENBREL [Suspect]
     Indication: PRODUCT USED FOR UNKNOWN INDICATION
     Dosage: 50 mg, qwk
  2. METHOTREXATE [Concomitant]
  3. FOLIC ACID [Concomitant]
     Dosage: 1 mg, UNK
  4. PREDNISONE [Concomitant]
     Dosage: 1 mg, UNK
  5. SYNTHROID [Concomitant]
  6. BISOPROLOL FUMARATE [Concomitant]
     Dosage: 5 mg, UNK
  7. SIMVASTATIN [Concomitant]
     Dosage: 5 mg, UNK
  8. CELEXA                             /00582602/ [Concomitant]
     Dosage: 10 mg, UNK
  9. ZOLPIDEM [Concomitant]
     Dosage: 5 mg, UNK
  10. OMEPRAZOLE [Concomitant]
     Dosage: 20 mg, UNK
  11. RECLAST [Concomitant]

REACTIONS (2)
  - Nasal congestion [Unknown]
  - Nasopharyngitis [Unknown]
